FAERS Safety Report 25943137 (Version 1)
Quarter: 2025Q4

REPORT INFORMATION
  Report Type: Spontaneous
  Country: US (occurrence: None)
  Receive Date: 20251020
  Receipt Date: 20251020
  Transmission Date: 20260118
  Serious: Yes (Disabling)
  Sender: FDA-CTU
  Company Number: None

PATIENT
  Age: 47 Year
  Sex: Female
  Weight: 65.25 kg

DRUGS (16)
  1. VENLAFAXINE HYDROCHLORIDE [Suspect]
     Active Substance: VENLAFAXINE HYDROCHLORIDE
     Indication: Insomnia
     Route: 048
     Dates: start: 20181001, end: 20190331
  2. VENLAFAXINE HYDROCHLORIDE [Suspect]
     Active Substance: VENLAFAXINE HYDROCHLORIDE
     Indication: Palpitations
  3. VENLAFAXINE HYDROCHLORIDE [Suspect]
     Active Substance: VENLAFAXINE HYDROCHLORIDE
     Indication: Palpitations
  4. VENLAFAXINE HYDROCHLORIDE [Suspect]
     Active Substance: VENLAFAXINE HYDROCHLORIDE
     Indication: Palpitations
  5. TRAZODONE [Suspect]
     Active Substance: TRAZODONE HYDROCHLORIDE
  6. NP Thyroid 75mg [Concomitant]
  7. hyperbolic tapering of Venlafaxine XR [Concomitant]
  8. TRAZODONE [Concomitant]
     Active Substance: TRAZODONE HYDROCHLORIDE
  9. Aripiprizole [Concomitant]
  10. FEXOFENADINE HYDROCHLORIDE [Concomitant]
     Active Substance: FEXOFENADINE HYDROCHLORIDE
  11. MOMETASONE FUROATE [Concomitant]
     Active Substance: MOMETASONE FUROATE
  12. LEVOMEFOLIC ACID [Concomitant]
     Active Substance: LEVOMEFOLIC ACID
  13. VITAMIN D3 [Concomitant]
     Active Substance: CHOLECALCIFEROL
  14. VITAMIN K [Concomitant]
     Active Substance: PHYTONADIONE
  15. MAGNEISUM GLYCINATE [Concomitant]
  16. GABA + L-Theanine [Concomitant]

REACTIONS (13)
  - Withdrawal syndrome [None]
  - Neuropathy peripheral [None]
  - Hypoaesthesia [None]
  - Paraesthesia [None]
  - Burning sensation [None]
  - Mania [None]
  - Speech disorder [None]
  - Sleep disorder [None]
  - Impulsive behaviour [None]
  - Delusion [None]
  - Hypersexuality [None]
  - Hyperacusis [None]
  - Loss of personal independence in daily activities [None]

NARRATIVE: CASE EVENT DATE: 20181001
